FAERS Safety Report 24286835 (Version 1)
Quarter: 2024Q3

REPORT INFORMATION
  Report Type: Report from Study
  Country: US (occurrence: US)
  Receive Date: 20240905
  Receipt Date: 20240905
  Transmission Date: 20241017
  Serious: Yes (Death, Other)
  Sender: GILEAD
  Company Number: US-GILEAD-2024-0686287

PATIENT
  Age: 63 Year
  Sex: Male

DRUGS (3)
  1. TENOFOVIR ALAFENAMIDE [Suspect]
     Active Substance: TENOFOVIR ALAFENAMIDE
     Indication: Product used for unknown indication
     Dosage: ONE TABLET DAILY W/ FOOD
     Route: 048
     Dates: start: 20230110, end: 20240717
  2. TYLENOL [Concomitant]
     Active Substance: ACETAMINOPHEN
  3. POTASSIUM [Concomitant]
     Active Substance: POTASSIUM

REACTIONS (1)
  - Death [Fatal]

NARRATIVE: CASE EVENT DATE: 20240717
